FAERS Safety Report 20651975 (Version 2)
Quarter: 2022Q2

REPORT INFORMATION
  Report Type: Spontaneous
  Country: US (occurrence: US)
  Receive Date: 20220330
  Receipt Date: 20220420
  Transmission Date: 20220721
  Serious: No
  Sender: FDA-Public Use
  Company Number: US-ORGANON-O2203USA002420

PATIENT
  Sex: Female

DRUGS (1)
  1. NEXPLANON [Suspect]
     Active Substance: ETONOGESTREL
     Dosage: 1 IMPLANT
     Route: 059
     Dates: start: 2014

REACTIONS (3)
  - Complication associated with device [Not Recovered/Not Resolved]
  - Incorrect product administration duration [Unknown]
  - No adverse event [Unknown]

NARRATIVE: CASE EVENT DATE: 20170101
